FAERS Safety Report 9797817 (Version 1)
Quarter: 2014Q1

REPORT INFORMATION
  Report Type: Spontaneous
  Country: US (occurrence: None)
  Receive Date: 20140102
  Receipt Date: 20140102
  Transmission Date: 20141002
  Serious: Yes (Disabling, Other)
  Sender: FDA-Public Use
  Company Number: None

PATIENT
  Age: 38 Year
  Sex: Male
  Weight: 83.92 kg

DRUGS (5)
  1. CIPROFLOXACIN [Suspect]
     Dosage: 1 PILL
     Route: 048
     Dates: start: 20131121, end: 20131229
  2. MAGNESIUM [Concomitant]
  3. PROBIOTICS [Concomitant]
  4. FIBER SUPPLEMENT [Concomitant]
  5. MILK OF MAGNESIA [Concomitant]

REACTIONS (6)
  - Hypoaesthesia [None]
  - Paraesthesia [None]
  - Burning sensation [None]
  - Insomnia [None]
  - Anxiety [None]
  - Impaired work ability [None]
